FAERS Safety Report 8406827-3 (Version None)
Quarter: 2012Q2

REPORT INFORMATION
  Report Type: 
  Country: None (occurrence: None)
  Receive Date: 20120529
  Receipt Date: 20041228
  Transmission Date: 20120825
  Serious: Yes (Hospitalization, Other)
  Sender: FDA-Public Use
  Company Number: 02100-JPN-05-0020

PATIENT
  Age: 74 Year
  Sex: Male

DRUGS (3)
  1. PLETAL [Suspect]
     Indication: CEREBRAL INFARCTION
     Dosage: 100 MG, BID, ORAL
     Route: 048
     Dates: start: 20040426, end: 20040430
  2. XANBON (OZAGREL) [Concomitant]
  3. HEPARIN [Concomitant]

REACTIONS (3)
  - DISEASE RECURRENCE [None]
  - CEREBRAL INFARCTION [None]
  - DYSARTHRIA [None]
